FAERS Safety Report 8532656-6 (Version None)
Quarter: 2012Q3

REPORT INFORMATION
  Report Type: 
  Country: None (occurrence: None)
  Receive Date: 20120724
  Receipt Date: 20120719
  Transmission Date: 20120928
  Serious: Yes (Hospitalization)
  Sender: FDA-Public Use
  Company Number: ZA-US-EMD SERONO, INC.-7141391

PATIENT
  Sex: Female

DRUGS (2)
  1. REBIF [Suspect]
     Route: 058
     Dates: end: 20120622
  2. REBIF [Suspect]
     Indication: RELAPSING-REMITTING MULTIPLE SCLEROSIS
     Route: 058
     Dates: start: 20111116

REACTIONS (6)
  - DEPRESSION [None]
  - VOMITING [None]
  - NAUSEA [None]
  - MYALGIA [None]
  - CHILLS [None]
  - PSYCHOTIC DISORDER [None]
